FAERS Safety Report 20940411 (Version 1)
Quarter: 2022Q2

REPORT INFORMATION
  Report Type: Report from Study
  Country: US (occurrence: US)
  Receive Date: 20220609
  Receipt Date: 20220609
  Transmission Date: 20220721
  Serious: Yes (Hospitalization, Other)
  Sender: FDA-Public Use
  Company Number: US-NOVARTISPH-NVSC2022US127957

PATIENT
  Sex: Female

DRUGS (1)
  1. ENTRESTO [Suspect]
     Active Substance: SACUBITRIL\VALSARTAN
     Indication: Product used for unknown indication
     Dosage: 1 DOSAGE FORM, (97/103 MG), BID
     Route: 048
     Dates: start: 20210114

REACTIONS (3)
  - Immune thrombocytopenia [Recovering/Resolving]
  - Dyspnoea [Unknown]
  - Fatigue [Unknown]
